FAERS Safety Report 5679071-0 (Version None)
Quarter: 2008Q1

REPORT INFORMATION
  Report Type: 
  Country: None (occurrence: None)
  Receive Date: 20080325
  Receipt Date: 20080318
  Transmission Date: 20080703
  Serious: Yes (Other)
  Sender: FDA-Public Use
  Company Number: US-JNJFOC-20080304742

PATIENT
  Sex: Female
  Weight: 77.11 kg

DRUGS (9)
  1. LEVAQUIN [Suspect]
     Indication: SINUSITIS
     Route: 048
  2. PROVIGIL [Interacting]
     Route: 048
  3. PROVIGIL [Interacting]
     Indication: SOMNOLENCE
     Route: 048
  4. SELEGILINE HCL [Interacting]
     Indication: DEPRESSION
     Route: 062
  5. DOXYCYCLINE [Concomitant]
     Route: 065
  6. XANAX [Concomitant]
     Route: 065
  7. ROZEREM [Concomitant]
     Route: 065
  8. SEROQUEL [Concomitant]
     Route: 065
  9. LORATADINE [Concomitant]
     Route: 065

REACTIONS (5)
  - DRUG INTERACTION [None]
  - HEADACHE [None]
  - HEART RATE INCREASED [None]
  - INSOMNIA [None]
  - MUSCULOSKELETAL STIFFNESS [None]
